FAERS Safety Report 14233162 (Version 1)
Quarter: 2017Q4

REPORT INFORMATION
  Report Type: Report from Study
  Country: US (occurrence: US)
  Receive Date: 20171128
  Receipt Date: 20171128
  Transmission Date: 20180321
  Serious: Yes (Hospitalization)
  Sender: FDA-Public Use
  Company Number: US-ACTELION-A-NJ2017-162895

PATIENT
  Age: 59 Year
  Sex: Male

DRUGS (1)
  1. OPSUMIT [Suspect]
     Active Substance: MACITENTAN
     Indication: PULMONARY ARTERIAL HYPERTENSION
     Dosage: 10 MG, QD
     Route: 048
     Dates: start: 20151110

REACTIONS (10)
  - White blood cell count increased [Unknown]
  - Headache [Unknown]
  - Fatigue [Unknown]
  - Dysarthria [Unknown]
  - Cardiac failure congestive [Unknown]
  - Atelectasis [Unknown]
  - Asthenia [Unknown]
  - Pneumonia [Unknown]
  - Subdural haemorrhage [Unknown]
  - Brain midline shift [Unknown]

NARRATIVE: CASE EVENT DATE: 20171016
